FAERS Safety Report 4282970-8 (Version None)
Quarter: 2004Q1

REPORT INFORMATION
  Report Type: 
  Country: None (occurrence: None)
  Receive Date: 20040130
  Receipt Date: 20040127
  Transmission Date: 20041129
  Serious: Yes (Life-Threatening, Hospitalization, Disabling)
  Sender: FDA-Public Use
  Company Number: EE-BRISTOL-MYERS SQUIBB COMPANY-12491833

PATIENT
  Age: 57 Year
  Sex: Male

DRUGS (4)
  1. METFORMIN HCL [Suspect]
     Indication: DIABETES MELLITUS
     Route: 048
     Dates: start: 20030113
  2. GLYBURIDE [Concomitant]
     Route: 048
  3. ENALAPRIL MALEATE AND HYDROCHLOROTHIAZIDE [Concomitant]
  4. ASPIRIN [Concomitant]

REACTIONS (1)
  - CEREBRAL INFARCTION [None]
